FAERS Safety Report 16645829 (Version 1)
Quarter: 2019Q3

REPORT INFORMATION
  Report Type: Spontaneous
  Country: CN (occurrence: CN)
  Receive Date: 20190730
  Receipt Date: 20190730
  Transmission Date: 20191004
  Serious: Yes (Other)
  Sender: FDA-Public Use
  Company Number: CN-MALLINCKRODT-T201905243

PATIENT
  Age: 80 Year
  Sex: Female
  Weight: 60 kg

DRUGS (4)
  1. OXYCODONE/ACETAMINOPHEN [Suspect]
     Active Substance: ACETAMINOPHEN\OXYCODONE HYDROCHLORIDE
     Indication: POSTOPERATIVE ANALGESIA
     Dosage: 1 DOSAGE FORM, BID
     Route: 048
     Dates: start: 20190627, end: 20190703
  2. FLURBIPROFEN AXETIL [Suspect]
     Active Substance: FLURBIPROFEN AXETIL
     Indication: POSTOPERATIVE ANALGESIA
     Dosage: 50 MILLIGRAM, QD
     Route: 042
     Dates: start: 20190627, end: 20190703
  3. MEROPENEM. [Concomitant]
     Active Substance: MEROPENEM
     Indication: INFECTION
     Dosage: 1 GRAM, QD
     Route: 042
     Dates: start: 20190627, end: 20190710
  4. LACTOBACILLUS BIFIDUS [Concomitant]
     Active Substance: BIFIDOBACTERIUM BIFIDUM
     Indication: PROBIOTIC THERAPY
     Dosage: 4 DOSAGE FORM, TID
     Route: 048
     Dates: start: 20190701, end: 20190705

REACTIONS (3)
  - Diarrhoea [Recovering/Resolving]
  - Upper gastrointestinal haemorrhage [Recovering/Resolving]
  - Faeces discoloured [Recovering/Resolving]

NARRATIVE: CASE EVENT DATE: 20190703
